FAERS Safety Report 8551791-X (Version None)
Quarter: 2012Q3

REPORT INFORMATION
  Report Type: 
  Country: None (occurrence: None)
  Receive Date: 20120730
  Receipt Date: 20120726
  Transmission Date: 20120928
  Serious: Yes (Life-Threatening)
  Sender: FDA-Public Use
  Company Number: JP-EISAI INC-E2090-02229-SPO-JP

PATIENT
  Age: 76 Year
  Sex: Male

DRUGS (3)
  1. EXFORGE [Concomitant]
     Route: 048
  2. ZONISAMIDE [Suspect]
     Route: 048
     Dates: end: 20120629
  3. SODIUM CHLORIDE [Concomitant]
     Route: 048

REACTIONS (1)
  - GRANULOCYTOPENIA [None]
